FAERS Safety Report 4594172-6 (Version None)
Quarter: 2005Q1

REPORT INFORMATION
  Report Type: 
  Country: None (occurrence: None)
  Receive Date: 20050301
  Receipt Date: 20050127
  Transmission Date: 20050727
  Serious: Yes (Life-Threatening)
  Sender: FDA-Public Use
  Company Number: JP-GLAXOSMITHKLINE-B0369823A

PATIENT
  Age: 68 Year
  Sex: Male
  Weight: 57 kg

DRUGS (7)
  1. CEFAZOLIN [Suspect]
     Indication: INFECTION PROPHYLAXIS
     Dosage: 2G PER DAY
     Route: 042
     Dates: start: 20050112, end: 20050112
  2. PROPOFOL [Concomitant]
     Indication: INTUBATION
     Route: 065
     Dates: start: 20050112, end: 20050112
  3. VECURONIUM BROMIDE [Concomitant]
     Indication: ANAESTHESIA
     Route: 065
     Dates: start: 20050112, end: 20050112
  4. SEVOFLURANE [Concomitant]
     Indication: ANAESTHESIA
     Dates: start: 20050112, end: 20050112
  5. NITROUS OXIDE [Concomitant]
     Indication: ANAESTHESIA
     Dates: start: 20050112, end: 20050112
  6. OXYGEN [Concomitant]
     Indication: ANAESTHESIA
     Dates: start: 20050112, end: 20050112
  7. OFLOXACIN [Concomitant]
     Route: 047
     Dates: start: 20050114

REACTIONS (4)
  - ANAPHYLACTIC SHOCK [None]
  - BLOOD PRESSURE DECREASED [None]
  - GENERALISED ERYTHEMA [None]
  - URTICARIA [None]
